FAERS Safety Report 8975725 (Version 2)
Quarter: 2013Q1

REPORT INFORMATION
  Report Type: Spontaneous
  Country: US (occurrence: US)
  Receive Date: 20121219
  Receipt Date: 20130121
  Transmission Date: 20140127
  Serious: Yes (Other)
  Sender: FDA-Public Use
  Company Number: US-ALLERGAN-1217344US

PATIENT
  Age: 64 Year
  Sex: Male

DRUGS (13)
  1. OZURDEX [Suspect]
     Indication: CHOROIDITIS
     Dosage: 0.7 MG, SINGLE
     Route: 031
     Dates: start: 20110406, end: 20110406
  2. OZURDEX [Suspect]
     Indication: CYSTOID MACULAR OEDEMA
     Dosage: 0.7 MG, SINGLE
     Route: 031
     Dates: start: 20110406, end: 20110406
  3. OZURDEX [Suspect]
     Dosage: 0.7 MG, SINGLE
     Route: 031
     Dates: start: 20111221, end: 20111221
  4. OZURDEX [Suspect]
     Dosage: 0.7 MG, SINGLE
     Route: 031
     Dates: start: 20120726, end: 20120726
  5. FLOMAX [Concomitant]
     Indication: URINARY RETENTION
  6. LIPITOR [Concomitant]
     Indication: BLOOD CHOLESTEROL INCREASED
     Dosage: UNK
  7. PRED FORTE [Concomitant]
     Indication: UVEITIS
     Dosage: 1 DROP TO THE RIGHT EYE 6 TIMES A DAY
     Route: 047
     Dates: start: 20110406
  8. PRED FORTE [Concomitant]
     Indication: SCLERITIS
  9. PRED FORTE [Concomitant]
     Indication: MACULAR OEDEMA
  10. PREDNISONE TAPER [Concomitant]
     Indication: PRODUCT USED FOR UNKNOWN INDICATION
  11. VIREAD [Concomitant]
     Indication: HIV INFECTION
     Dosage: UNK
  12. SUSTIVA [Concomitant]
     Indication: HIV INFECTION
     Dosage: UNK
  13. OCUFLOX? [Concomitant]
     Indication: PROPHYLAXIS
     Dosage: UNK UNK, QID
     Route: 047
     Dates: start: 20110406

REACTIONS (1)
  - Endophthalmitis [Recovered/Resolved]
